FAERS Safety Report 6085949-9 (Version None)
Quarter: 2009Q1

REPORT INFORMATION
  Report Type: 
  Country: None (occurrence: None)
  Receive Date: 20090220
  Receipt Date: 20090211
  Transmission Date: 20090719
  Serious: Yes (Other)
  Sender: FDA-Public Use
  Company Number: JP-ELI_LILLY_AND_COMPANY-JP200902004236

PATIENT

DRUGS (1)
  1. HUMALOG MIX 75/25 [Suspect]
     Route: 058

REACTIONS (1)
  - HYPOGLYCAEMIC UNCONSCIOUSNESS [None]
